FAERS Safety Report 4845085-3 (Version None)
Quarter: 2005Q4

REPORT INFORMATION
  Report Type: 
  Country: None (occurrence: None)
  Receive Date: 20051205
  Receipt Date: 20051128
  Transmission Date: 20060501
  Serious: Yes (Life-Threatening)
  Sender: FDA-Public Use
  Company Number: 2005GB02320

PATIENT
  Age: 42 Year
  Sex: Female

DRUGS (3)
  1. LIDOCAINE [Suspect]
     Indication: PLANTAR FASCIITIS
     Route: 065
     Dates: start: 20051031, end: 20051031
  2. KENALOG [Suspect]
     Indication: PLANTAR FASCIITIS
     Route: 065
     Dates: start: 20051031, end: 20051031
  3. UNSPECIFIED INHALER [Concomitant]
     Indication: ASTHMA

REACTIONS (4)
  - LOSS OF CONSCIOUSNESS [None]
  - NAUSEA [None]
  - SYNCOPE [None]
  - URTICARIA [None]
